FAERS Safety Report 7291337-X (Version None)
Quarter: 2011Q1

REPORT INFORMATION
  Report Type: 
  Country: None (occurrence: None)
  Receive Date: 20110214
  Receipt Date: 20110211
  Transmission Date: 20110831
  Serious: Yes (Death)
  Sender: FDA-Public Use
  Company Number: A0900090A

PATIENT
  Age: 60 Year
  Sex: Male
  Weight: 65.6 kg

DRUGS (1)
  1. ARIXTRA [Suspect]
     Dosage: 7.5MG UNKNOWN
     Route: 065

REACTIONS (1)
  - PANCREATIC CARCINOMA [None]
